FAERS Safety Report 4908596-8 (Version None)
Quarter: 2006Q1

REPORT INFORMATION
  Report Type: 
  Country: None (occurrence: None)
  Receive Date: 20060210
  Receipt Date: 20050913
  Transmission Date: 20060701
  Serious: Yes (Hospitalization, Disabling, Other)
  Sender: FDA-Public Use
  Company Number: US-GLAXOSMITHKLINE-A0574039A

PATIENT
  Age: 12 Year
  Sex: Female

DRUGS (4)
  1. PAXIL CR [Suspect]
     Indication: ANXIETY
     Dosage: 12.5MG PER DAY
     Route: 048
     Dates: start: 20050910, end: 20050911
  2. CONCERTA [Concomitant]
     Dosage: 54MG IN THE MORNING
     Route: 048
  3. CLONIDINE [Concomitant]
     Dosage: .1MG AT NIGHT
     Route: 048
  4. VISTARIL [Concomitant]
     Dosage: 50MG AT NIGHT
     Route: 048

REACTIONS (2)
  - CHILLS [None]
  - FACIAL SPASM [None]
